FAERS Safety Report 17473389 (Version 1)
Quarter: 2020Q1

REPORT INFORMATION
  Report Type: Report from Study
  Country: CO (occurrence: CO)
  Receive Date: 20200228
  Receipt Date: 20200228
  Transmission Date: 20200409
  Serious: Yes (Other)
  Sender: FDA-Public Use
  Company Number: CO-JNJFOC-20191022227

PATIENT
  Sex: Male

DRUGS (2)
  1. SIMPONI [Suspect]
     Active Substance: GOLIMUMAB
     Indication: ANKYLOSING SPONDYLITIS
     Route: 058
     Dates: start: 20150116
  2. OXYCODONE [Suspect]
     Active Substance: OXYCODONE

REACTIONS (10)
  - Maxillofacial operation [Unknown]
  - Diverticulum [Unknown]
  - Drug ineffective [Unknown]
  - Hyperaesthesia [Unknown]
  - Fibromyalgia [Unknown]
  - Arthritis [Unknown]
  - Headache [Unknown]
  - Lethargy [Unknown]
  - Dental implantation [Unknown]
  - Laryngitis [Unknown]
